FAERS Safety Report 7781221-7 (Version None)
Quarter: 2011Q3

REPORT INFORMATION
  Report Type: 
  Country: None (occurrence: None)
  Receive Date: 20110927
  Receipt Date: 20110920
  Transmission Date: 20111222
  Serious: Yes (Hospitalization)
  Sender: FDA-Public Use
  Company Number: US-UCBSA-041292

PATIENT
  Age: 20 Year
  Sex: Male

DRUGS (3)
  1. ALPRAZOLAM [Suspect]
     Route: 048
  2. UNSPECIFIED DRUG INHALANT [Suspect]
     Route: 045
  3. OXYCODONE [Suspect]
     Route: 048

REACTIONS (6)
  - TOXICITY TO VARIOUS AGENTS [None]
  - CARDIOMYOPATHY [None]
  - LEFT VENTRICULAR DYSFUNCTION [None]
  - CARDIAC ENZYMES INCREASED [None]
  - SUBSTANCE ABUSE [None]
  - MENTAL STATUS CHANGES [None]
